FAERS Safety Report 15005234 (Version 1)
Quarter: 2018Q2

REPORT INFORMATION
  Report Type: Spontaneous
  Country: US (occurrence: US)
  Receive Date: 20180525
  Receipt Date: 20180525
  Transmission Date: 20180711
  Serious: Yes (Hospitalization)
  Sender: FDA-Public Use
  Company Number: None

PATIENT
  Age: 63 Year
  Sex: Female

DRUGS (19)
  1. CYMBALTA [Concomitant]
     Active Substance: DULOXETINE HYDROCHLORIDE
  2. GLIPIZIDE. [Concomitant]
     Active Substance: GLIPIZIDE
  3. LEVEMIR [Concomitant]
     Active Substance: INSULIN DETEMIR
  4. MEDROL [Concomitant]
     Active Substance: METHYLPREDNISOLONE
  5. MILK THISTLE [Concomitant]
     Active Substance: DIETARY SUPPLEMENT\HERBALS\MILK THISTLE
  6. ONDANSETRON [Concomitant]
     Active Substance: ONDANSETRON
  7. AFINITOR [Suspect]
     Active Substance: EVEROLIMUS
     Indication: NEUROENDOCRINE CARCINOMA
     Route: 048
     Dates: start: 20180213
  8. DILAUDID [Concomitant]
     Active Substance: HYDROMORPHONE HYDROCHLORIDE
  9. LIDODERM [Concomitant]
     Active Substance: LIDOCAINE
  10. QUERCETIN [Concomitant]
     Active Substance: QUERCETIN
  11. IBUPROFEN. [Concomitant]
     Active Substance: IBUPROFEN
  12. NETTLE LEAF [Concomitant]
  13. CORTISOL [Concomitant]
     Active Substance: HYDROCORTISONE
  14. CREON [Concomitant]
     Active Substance: PANCRELIPASE AMYLASE\PANCRELIPASE LIPASE\PANCRELIPASE PROTEASE
  15. FAMOTIDINE. [Concomitant]
     Active Substance: FAMOTIDINE
  16. LOSARTAN. [Concomitant]
     Active Substance: LOSARTAN
  17. PROAIR HFA [Concomitant]
     Active Substance: ALBUTEROL SULFATE
  18. VITAMIN D [Concomitant]
     Active Substance: CHOLECALCIFEROL
  19. ALBUTEROL. [Concomitant]
     Active Substance: ALBUTEROL

REACTIONS (5)
  - Lethargy [None]
  - Bacterial infection [None]
  - Dizziness [None]
  - Impaired healing [None]
  - Rash [None]

NARRATIVE: CASE EVENT DATE: 20180523
